FAERS Safety Report 25635180 (Version 2)
Quarter: 2025Q3

REPORT INFORMATION
  Report Type: Report from Study
  Country: CA (occurrence: CA)
  Receive Date: 20250802
  Receipt Date: 20250821
  Transmission Date: 20251021
  Serious: Yes (Death, Other)
  Sender: TOLMAR
  Company Number: CA-20250722-85eee7, TLM-2025-05232(0)

PATIENT
  Sex: Male

DRUGS (3)
  1. ELIGARD [Suspect]
     Active Substance: LEUPROLIDE ACETATE
     Indication: Prostate cancer
     Dosage: 45 MG, EVERY 6 MONTHS
     Route: 058
     Dates: start: 20230511
  2. ELIGARD [Suspect]
     Active Substance: LEUPROLIDE ACETATE
     Dosage: 45 MG, EVERY 6 MONTHS
     Route: 058
     Dates: start: 20250219
  3. ELIGARD [Suspect]
     Active Substance: LEUPROLIDE ACETATE
     Indication: Prostate cancer

REACTIONS (12)
  - Death [Fatal]
  - Diabetes mellitus [Fatal]
  - Atrial fibrillation [Fatal]
  - Chronic kidney disease [Fatal]
  - Transient ischaemic attack [Fatal]
  - Gastrointestinal haemorrhage [Fatal]
  - Dementia Alzheimer^s type [Fatal]
  - Coronary artery disease [Fatal]
  - Aortic aneurysm [Fatal]
  - Asthma [Fatal]
  - Sleep apnoea syndrome [Fatal]
  - Fall [Fatal]
